FAERS Safety Report 23499352 (Version 3)
Quarter: 2025Q3

REPORT INFORMATION
  Report Type: Spontaneous
  Country: US (occurrence: US)
  Receive Date: 20240208
  Receipt Date: 20250716
  Transmission Date: 20251021
  Serious: No
  Sender: CSL BEHRING
  Company Number: US-BEH-2024167982

PATIENT
  Age: 45 Year
  Sex: Female

DRUGS (4)
  1. HIZENTRA [Suspect]
     Active Substance: HUMAN IMMUNOGLOBULIN G
     Indication: Chronic inflammatory demyelinating polyradiculoneuropathy
     Route: 058
     Dates: start: 202211
  2. HIZENTRA [Suspect]
     Active Substance: HUMAN IMMUNOGLOBULIN G
     Dosage: 10 G, QW
     Route: 058
  3. PROPRANOLOL [Concomitant]
     Active Substance: PROPRANOLOL HYDROCHLORIDE
  4. PREGABALIN [Concomitant]
     Active Substance: PREGABALIN

REACTIONS (4)
  - Upper respiratory tract infection [Not Recovered/Not Resolved]
  - Dysphonia [Not Recovered/Not Resolved]
  - Infusion site induration [Unknown]
  - Injection site bruising [Unknown]
